FAERS Safety Report 15271318 (Version 1)
Quarter: 2018Q3

REPORT INFORMATION
  Report Type: Report from Study
  Country: DE (occurrence: DE)
  Receive Date: 20180813
  Receipt Date: 20180813
  Transmission Date: 20181010
  Serious: Yes (Other)
  Sender: FDA-Public Use
  Company Number: PHHY2017DE158240

PATIENT
  Sex: Male
  Weight: 85 kg

DRUGS (12)
  1. COSENTYX [Suspect]
     Active Substance: SECUKINUMAB
     Dosage: 150 MG, PER APPLICATION
     Route: 065
     Dates: start: 20170330, end: 20170404
  2. NOVALGIN (METAMIZOLE SODIUM) [Concomitant]
     Active Substance: METAMIZOLE SODIUM
     Indication: HEADACHE
     Dosage: 50 DROPS; EVERY 3?4 DAYS
     Route: 048
     Dates: start: 2014
  3. TALVOSILEN [Concomitant]
     Active Substance: ACETAMINOPHEN\CODEINE PHOSPHATE
     Indication: PAIN
     Dosage: 500 MG/30 MG; AS NEEDED, 2?3 X WEEK
     Route: 048
     Dates: start: 201507
  4. COSENTYX [Suspect]
     Active Substance: SECUKINUMAB
     Dosage: 150 MG, PER APPLICATION
     Route: 065
     Dates: start: 20170504
  5. IBUPROFEN. [Concomitant]
     Active Substance: IBUPROFEN
     Indication: PAIN
     Dosage: 800 MG, 3X WEEKLY
     Route: 048
     Dates: start: 1998
  6. COSENTYX [Suspect]
     Active Substance: SECUKINUMAB
     Indication: ANKYLOSING SPONDYLITIS
     Dosage: 150 MG, PER APPLICATION
     Route: 065
     Dates: start: 20161209, end: 20161229
  7. COSENTYX [Suspect]
     Active Substance: SECUKINUMAB
     Dosage: 150 MG, PER APPLICATION
     Route: 065
     Dates: start: 20170105, end: 20170105
  8. COSENTYX [Suspect]
     Active Substance: SECUKINUMAB
     Dosage: 150 MG, PER APPLICATION
     Route: 065
     Dates: start: 20170202, end: 20170302
  9. ZALDIAR [Concomitant]
     Active Substance: ACETAMINOPHEN\TRAMADOL HYDROCHLORIDE
     Indication: MIGRAINE
     Dosage: 37.5/325 MG; EVERY 2?3 DAYS
     Route: 048
     Dates: start: 20170302, end: 20170503
  10. VIGANTOLETTEN [Concomitant]
     Active Substance: CHOLECALCIFEROL
     Indication: VITAMIN D DEFICIENCY
     Dosage: 1000 IU, QD
     Route: 048
     Dates: start: 20161209
  11. COSENTYX [Suspect]
     Active Substance: SECUKINUMAB
     Dosage: 150 MG, PER APPLICATION
     Route: 065
     Dates: start: 20170427, end: 20170427
  12. NARATRIPTAN [Concomitant]
     Active Substance: NARATRIPTAN HYDROCHLORIDE
     Indication: MIGRAINE
     Dosage: 2.5 MG, PRN
     Route: 048
     Dates: start: 20170504, end: 20170808

REACTIONS (5)
  - Abdominal distension [Not Recovered/Not Resolved]
  - Nasopharyngitis [Recovered/Resolved]
  - Post-traumatic stress disorder [Recovering/Resolving]
  - Respiratory tract infection [Recovered/Resolved]
  - Overdose [Not Recovered/Not Resolved]

NARRATIVE: CASE EVENT DATE: 20170404
